FAERS Safety Report 7457403-0 (Version None)
Quarter: 2011Q2

REPORT INFORMATION
  Report Type: 
  Country: None (occurrence: None)
  Receive Date: 20110504
  Receipt Date: 20100813
  Transmission Date: 20111010
  Serious: Yes (Other)
  Sender: FDA-Public Use
  Company Number: US-SANOFI-AVENTIS-2010SA048667

PATIENT
  Sex: Female
  Weight: 98.88 kg

DRUGS (8)
  1. APIDRA [Suspect]
     Dosage: (4XDAILY) VIA PUMP .9  NIGHT QHR,DAY 1 UNIT QHR PLUS BOLUS FOR MEALS/ SNACKS TOTAL 40 TO 50 UNITS
     Route: 058
  2. METOPROLOL SUCCINATE [Concomitant]
     Route: 048
     Dates: end: 20100816
  3. METOPROLOL SUCCINATE [Concomitant]
     Route: 048
     Dates: start: 20100817
  4. APIDRA [Suspect]
     Indication: TYPE 1 DIABETES MELLITUS
     Dosage: INSULIN VIA PUMP
     Route: 058
     Dates: start: 20100301, end: 20100813
  5. APIDRA [Suspect]
     Dosage: INSULIN VIA PUMP
     Route: 058
     Dates: start: 20100301, end: 20100813
  6. APIDRA [Suspect]
     Dosage: VIA PUMP DOSE:45 UNIT(S)
     Route: 058
     Dates: start: 20100813
  7. APIDRA [Suspect]
     Dosage: (4XDAILY) VIA PUMP .9  NIGHT QHR,DAY 1 UNIT QHR PLUS BOLUS FOR MEALS/ SNACKS TOTAL 40 TO 50 UNITS
     Route: 058
  8. APIDRA [Suspect]
     Dosage: VIA PUMP DOSE:45 UNIT(S)
     Route: 058
     Dates: start: 20100813

REACTIONS (2)
  - HYPOGLYCAEMIA [None]
  - TREMOR [None]
